FAERS Safety Report 8174871-X (Version None)
Quarter: 2012Q1

REPORT INFORMATION
  Report Type: 
  Country: None (occurrence: None)
  Receive Date: 20120229
  Receipt Date: 20110318
  Transmission Date: 20120608
  Serious: No
  Sender: FDA-Public Use
  Company Number: US-GLAXOSMITHKLINE-A0918958A

PATIENT
  Age: 86 Year
  Sex: Female

DRUGS (1)
  1. VALTREX [Suspect]
     Indication: PRODUCT USED FOR UNKNOWN INDICATION
     Dosage: 2G SINGLE DOSE
     Route: 048
     Dates: start: 20110314, end: 20110314

REACTIONS (5)
  - SWELLING [None]
  - BACK PAIN [None]
  - NAUSEA [None]
  - TREMOR [None]
  - DIARRHOEA [None]
